FAERS Safety Report 14425076 (Version 1)
Quarter: 2018Q1

REPORT INFORMATION
  Report Type: Spontaneous
  Country: US (occurrence: US)
  Receive Date: 20180123
  Receipt Date: 20180123
  Transmission Date: 20180509
  Serious: Yes (Hospitalization)
  Sender: FDA-Public Use
  Company Number: US-RISING PHARMACEUTICALS, INC.-2018RIS00008

PATIENT
  Age: 51 Year
  Sex: Male

DRUGS (1)
  1. TEMOZOLOMIDE. [Suspect]
     Active Substance: TEMOZOLOMIDE
     Indication: GLIOBLASTOMA MULTIFORME
     Dosage: 7 CYCLES
     Route: 065

REACTIONS (4)
  - Blastomycosis [Unknown]
  - Histoplasmosis [Unknown]
  - Pulmonary cavitation [Unknown]
  - Pulmonary embolism [Unknown]
